FAERS Safety Report 5123369-1 (Version None)
Quarter: 2006Q4

REPORT INFORMATION
  Report Type: 
  Country: None (occurrence: None)
  Receive Date: 20061009
  Receipt Date: 20060929
  Transmission Date: 20070319
  Serious: Yes (Hospitalization)
  Sender: FDA-Public Use
  Company Number: FR-BRISTOL-MYERS SQUIBB COMPANY-13526421

PATIENT
  Age: 54 Year
  Sex: Female

DRUGS (7)
  1. GLUCOPHAGE [Suspect]
     Indication: DIABETES MELLITUS
     Route: 048
  2. CHRONADALATE [Suspect]
     Indication: HYPERTENSION
     Route: 048
  3. NOVONORM [Suspect]
     Indication: DIABETES MELLITUS
  4. LEVOTHYROXINE SODIUM [Concomitant]
  5. PROGRAF [Concomitant]
     Indication: RENAL TRANSPLANT
     Dosage: DOSING: PROGRAF (TACROLIMUS) 3.5MG(3.5MG, 1D)
  6. APROVEL [Concomitant]
     Indication: HYPERTENSION
     Dates: start: 20060327
  7. TRIATEC [Concomitant]
     Indication: HYPERTENSION
     Dates: start: 20060327

REACTIONS (1)
  - HAEMOLYTIC ANAEMIA [None]
